FAERS Safety Report 14071747 (Version 2)
Quarter: 2018Q1

REPORT INFORMATION
  Report Type: Spontaneous
  Country: US (occurrence: US)
  Receive Date: 20171010
  Receipt Date: 20180105
  Transmission Date: 20180508
  Serious: No
  Sender: FDA-Public Use
  Company Number: US-SA-2017SA153732

PATIENT
  Age: 19 Year
  Sex: Female

DRUGS (6)
  1. SERTRALINE HYDROCHLORIDE. [Concomitant]
     Active Substance: SERTRALINE HYDROCHLORIDE
     Route: 065
  2. BUSPIRON [Concomitant]
     Active Substance: BUSPIRONE HYDROCHLORIDE
     Route: 065
  3. DUPIXENT [Suspect]
     Active Substance: DUPILUMAB
     Indication: DERMATITIS ATOPIC
     Route: 058
     Dates: start: 2017
  4. MONTELUKAST SODIUM. [Concomitant]
     Active Substance: MONTELUKAST SODIUM
     Route: 065
  5. DUPIXENT [Suspect]
     Active Substance: DUPILUMAB
     Indication: DERMATITIS ATOPIC
     Route: 058
     Dates: start: 201707, end: 201707
  6. MICROGESTIN [Concomitant]
     Active Substance: ETHINYL ESTRADIOL\NORETHINDRONE ACETATE
     Route: 065

REACTIONS (2)
  - Menorrhagia [Unknown]
  - Rash [Recovered/Resolved]

NARRATIVE: CASE EVENT DATE: 2017
